FAERS Safety Report 20013375 (Version 2)
Quarter: 2021Q4

REPORT INFORMATION
  Report Type: Spontaneous
  Country: US (occurrence: US)
  Receive Date: 20211029
  Receipt Date: 20211201
  Transmission Date: 20220303
  Serious: Yes (Hospitalization, Other)
  Sender: FDA-Public Use
  Company Number: US-NOVARTISPH-NVSC2021US242448

PATIENT
  Sex: Female

DRUGS (4)
  1. HYCAMTIN [Suspect]
     Active Substance: TOPOTECAN HYDROCHLORIDE
     Indication: Endometrial neoplasm
     Dosage: 1 MG (BY MOUTH EVERY OTHER DAY, MONDAY TO FRIDAY FOR 3 WEEKS OFF, 1 WEEK OFF)
     Route: 048
     Dates: start: 20210630
  2. HYCAMTIN [Suspect]
     Active Substance: TOPOTECAN HYDROCHLORIDE
     Indication: Uterine cancer
     Dosage: 2 MG (BY MOUTH, EVERY OTHER DAY, MONDAY TO FRIDAY FOR 3 WEEKS OFF, 1 WEEK OFF)
     Route: 048
  3. HYCAMTIN [Suspect]
     Active Substance: TOPOTECAN HYDROCHLORIDE
     Indication: Ovarian cancer
     Dosage: 1 MG (BY MOUTH EVERY OTHER DAY, MONDAY TO FRIDAY FOR 3 WEEKS OFF, 1 WEEK OFF)
     Route: 048
     Dates: start: 202106
  4. HYCAMTIN [Suspect]
     Active Substance: TOPOTECAN HYDROCHLORIDE
     Indication: Agranulocytosis
     Dosage: 2 MG (BY MOUTH, EVERY OTHER DAY, MONDAY TO FRIDAY FOR 3 WEEKS OFF, 1 WEEK OFF)
     Route: 048
     Dates: start: 202106

REACTIONS (6)
  - Small intestinal obstruction [Unknown]
  - Abdominal neoplasm [Unknown]
  - Kidney infection [Unknown]
  - Pyrexia [Unknown]
  - Tumour compression [Unknown]
  - Product use in unapproved indication [Unknown]
